FAERS Safety Report 18162080 (Version 1)
Quarter: 2020Q3

REPORT INFORMATION
  Report Type: Spontaneous
  Country: US (occurrence: US)
  Receive Date: 20200818
  Receipt Date: 20200818
  Transmission Date: 20201103
  Serious: Yes (Life-Threatening, Hospitalization, Disabling)
  Sender: FDA-Public Use
  Company Number: None

PATIENT
  Age: 91 Year
  Sex: Female
  Weight: 57.6 kg

DRUGS (2)
  1. APIXABAN [Suspect]
     Active Substance: APIXABAN
  2. ANDEXXA [Suspect]
     Active Substance: ANDEXANET ALFA
     Dosage: ?          OTHER FREQUENCY:ONCE;?
     Route: 041
     Dates: start: 20200728, end: 20200728

REACTIONS (4)
  - Asthenia [None]
  - Melaena [None]
  - Gastrointestinal haemorrhage [None]
  - Blindness [None]

NARRATIVE: CASE EVENT DATE: 20200728
